FAERS Safety Report 4500877-5 (Version None)
Quarter: 2004Q4

REPORT INFORMATION
  Report Type: 
  Country: None (occurrence: None)
  Receive Date: 20041109
  Receipt Date: 20041021
  Transmission Date: 20050328
  Serious: Yes (Other)
  Sender: FDA-Public Use
  Company Number: 9152

PATIENT
  Age: 75 Year
  Sex: Male

DRUGS (9)
  1. METHOTREXATE [Suspect]
     Indication: PSORIATIC ARTHROPATHY
     Dosage: 7.5 MG WEEKLY PO
     Route: 048
     Dates: start: 20040810, end: 20041001
  2. ASPIRIN [Concomitant]
  3. CLOPIDOGREL BISULFATE [Concomitant]
  4. CANDESARTAN [Concomitant]
  5. ATENOLOL [Concomitant]
  6. CODEINE [Concomitant]
  7. GLUCAGON [Concomitant]
  8. MVIT [Concomitant]
  9. K+ [Concomitant]

REACTIONS (8)
  - APHAGIA [None]
  - DYSPEPSIA [None]
  - OESOPHAGEAL PAIN [None]
  - PHARYNGOLARYNGEAL PAIN [None]
  - THROAT IRRITATION [None]
  - THROAT TIGHTNESS [None]
  - VOMITING [None]
  - WEIGHT DECREASED [None]
